FAERS Safety Report 5274350-3 (Version None)
Quarter: 2007Q1

REPORT INFORMATION
  Report Type: 
  Country: None (occurrence: None)
  Receive Date: 20070323
  Receipt Date: 20070315
  Transmission Date: 20070707
  Serious: Yes (Death, Hospitalization, Other)
  Sender: FDA-Public Use
  Company Number: US-PFIZER INC-2005166859

PATIENT
  Sex: Male

DRUGS (13)
  1. NEURONTIN [Suspect]
     Indication: NEURALGIA
     Route: 048
  2. OXYCONTIN [Suspect]
     Indication: PAIN
     Route: 048
  3. PROVIGIL [Suspect]
  4. DEXTROTHYROXINE [Suspect]
  5. KEPPRA [Concomitant]
     Indication: PAIN
     Route: 048
  6. MIRTAZAPINE [Concomitant]
     Route: 048
  7. ELAVIL [Concomitant]
     Dosage: FREQ:AT BEDTIME
  8. GABITRIL [Concomitant]
  9. NSAID'S [Concomitant]
  10. ZANAFLEX [Concomitant]
     Dates: start: 20040713
  11. CYMBALTA [Concomitant]
  12. DURAGESIC-100 [Concomitant]
  13. MORPHINE [Concomitant]

REACTIONS (13)
  - ANOXIC ENCEPHALOPATHY [None]
  - ANXIETY [None]
  - CARDIAC ARREST [None]
  - COMA [None]
  - COMPLETED SUICIDE [None]
  - DEPRESSION [None]
  - DRUG INEFFECTIVE [None]
  - HYPOTENSION [None]
  - INTENTIONAL OVERDOSE [None]
  - NARCOTIC INTOXICATION [None]
  - PAIN [None]
  - RESPIRATORY ARREST [None]
  - SUICIDE ATTEMPT [None]
